FAERS Safety Report 6848475-2 (Version None)
Quarter: 2010Q3

REPORT INFORMATION
  Report Type: 
  Country: None (occurrence: None)
  Receive Date: 20100716
  Receipt Date: 20100706
  Transmission Date: 20110219
  Serious: No
  Sender: FDA-Public Use
  Company Number: US-JNJFOC-20100702522

PATIENT
  Sex: Female
  Weight: 80.74 kg

DRUGS (17)
  1. SANDOZ FENTANYL TRANSDERMAL SYSTEM [Suspect]
     Indication: ROAD TRAFFIC ACCIDENT
     Dosage: NDC# 0781-7114-55
     Route: 062
  2. ALLEGRA [Concomitant]
     Indication: ASTHMA
     Dosage: DAILY
     Route: 048
  3. SPIRIVA [Concomitant]
     Indication: ASTHMA
     Route: 055
  4. ADVAIR DISKUS 100/50 [Concomitant]
     Indication: ASTHMA
     Route: 055
  5. GABAPENTIN [Concomitant]
     Route: 055
  6. OMEPRAZOLE [Concomitant]
     Route: 048
  7. ASPIRIN [Concomitant]
     Route: 048
  8. SINGULAIR [Concomitant]
     Route: 048
  9. CARDIZEM [Concomitant]
     Route: 048
  10. REQUIP [Concomitant]
     Route: 048
  11. CITALOPRAM HYDROBROMIDE [Concomitant]
     Route: 048
  12. XANAX [Concomitant]
     Dosage: 0.025MG AS NEEDED ORAL
     Route: 048
  13. PREDNISONE [Concomitant]
     Route: 048
  14. ALBUTEROL [Concomitant]
     Dosage: 1 PUFF 3 TIMES A DAY
     Route: 055
  15. PULMICORT [Concomitant]
     Dosage: 1 PUFF DAILY
     Route: 055
  16. GLYBURIDE [Concomitant]
     Indication: BLOOD GLUCOSE ABNORMAL
     Dosage: 150 MG AS NEEDED
     Route: 048
  17. ESTROGEN [Concomitant]
     Route: 061

REACTIONS (2)
  - PRODUCT ADHESION ISSUE [None]
  - WRONG TECHNIQUE IN DRUG USAGE PROCESS [None]
